FAERS Safety Report 4837396-2 (Version None)
Quarter: 2005Q4

REPORT INFORMATION
  Report Type: 
  Country: None (occurrence: None)
  Receive Date: 20051122
  Receipt Date: 20051107
  Transmission Date: 20060501
  Serious: Yes (Other)
  Sender: FDA-Public Use
  Company Number: 12862

PATIENT
  Sex: Male

DRUGS (1)
  1. METHOTREXATE [Suspect]
     Dosage: 3 G/M2 WEEKLY IV
     Route: 042

REACTIONS (3)
  - HEMIPARESIS [None]
  - INCORRECT DRUG ADMINISTRATION RATE [None]
  - PARAESTHESIA [None]
